FAERS Safety Report 6429334-6 (Version None)
Quarter: 2009Q4

REPORT INFORMATION
  Report Type: 
  Country: None (occurrence: None)
  Receive Date: 20091029
  Receipt Date: 20091020
  Transmission Date: 20100525
  Serious: Yes (Other)
  Sender: FDA-Public Use
  Company Number: 2009SP031666

PATIENT
  Age: 16 Year
  Sex: Male

DRUGS (1)
  1. ASMANEX TWISTHALER [Suspect]
     Indication: DRUG USE FOR UNKNOWN INDICATION
     Dosage: 220 MCG;QAM;PO, 110 MCG
     Route: 048

REACTIONS (3)
  - HAEMATURIA [None]
  - HYPERTENSION [None]
  - PROTHROMBIN TIME PROLONGED [None]
